FAERS Safety Report 7332205-4 (Version None)
Quarter: 2011Q1

REPORT INFORMATION
  Report Type: 
  Country: None (occurrence: None)
  Receive Date: 20110304
  Receipt Date: 20110225
  Transmission Date: 20110831
  Serious: Yes (Hospitalization, Other)
  Sender: FDA-Public Use
  Company Number: JP-PFIZER INC-2011028466

PATIENT
  Age: 78 Year
  Sex: Male
  Weight: 44.3 kg

DRUGS (2)
  1. LOXONIN [Suspect]
     Indication: BACK PAIN
     Dosage: 60 MG, 3X/DAY
     Route: 048
     Dates: start: 20110112, end: 20110207
  2. GABAPEN [Suspect]
     Indication: PAIN
     Dosage: 400 MG, DAILY
     Route: 048
     Dates: start: 20110204, end: 20110207

REACTIONS (1)
  - INTERSTITIAL LUNG DISEASE [None]
